FAERS Safety Report 24194175 (Version 1)
Quarter: 2024Q3

REPORT INFORMATION
  Report Type: Spontaneous
  Country: US (occurrence: US)
  Receive Date: 20240809
  Receipt Date: 20240809
  Transmission Date: 20241016
  Serious: Yes (Hospitalization)
  Sender: HIKMA
  Company Number: US-MLMSERVICE-20240724-PI142681-00149-1

PATIENT
  Age: 79 Year
  Sex: Female

DRUGS (1)
  1. FLECAINIDE [Interacting]
     Active Substance: FLECAINIDE
     Indication: Atrial fibrillation
     Dosage: 150 MILLIGRAM, Q12H
     Route: 065
     Dates: end: 202403

REACTIONS (10)
  - Hyperkalaemia [Unknown]
  - Acute kidney injury [Recovered/Resolved]
  - Hallucination, visual [Recovered/Resolved]
  - Dehydration [Recovered/Resolved]
  - Electrocardiogram QRS complex prolonged [Recovering/Resolving]
  - Encephalopathy [Recovered/Resolved]
  - Diarrhoea [Unknown]
  - Toxicity to various agents [Recovering/Resolving]
  - Drug interaction [Recovered/Resolved]
  - Bradycardia [Recovering/Resolving]

NARRATIVE: CASE EVENT DATE: 20240101
